FAERS Safety Report 5520788-6 (Version None)
Quarter: 2007Q4

REPORT INFORMATION
  Report Type: 
  Country: None (occurrence: None)
  Receive Date: 20071119
  Receipt Date: 20071105
  Transmission Date: 20080405
  Serious: Yes (Other)
  Sender: FDA-Public Use
  Company Number: CA-PFIZER INC-2007095062

PATIENT
  Sex: Female

DRUGS (2)
  1. CHANTIX [Suspect]
  2. CELEBREX [Suspect]
     Indication: DEPRESSION

REACTIONS (6)
  - DISTURBANCE IN ATTENTION [None]
  - FEELING ABNORMAL [None]
  - IMPAIRED DRIVING ABILITY [None]
  - MEMORY IMPAIRMENT [None]
  - MENSTRUAL DISORDER [None]
  - ROAD TRAFFIC ACCIDENT [None]
